FAERS Safety Report 8925726 (Version 1)
Quarter: 2012Q4

REPORT INFORMATION
  Report Type: 
  Country: ID (occurrence: ID)
  Receive Date: 20121126
  Receipt Date: 20121126
  Transmission Date: 20130627
  Serious: Yes (Death)
  Sender: FDA-Public Use
  Company Number: PHHY2012ID106804

PATIENT
  Sex: Male

DRUGS (1)
  1. GLIVEC [Suspect]
     Dosage: 2 DF, BID (100 mg, 2 x 2)
     Route: 048
     Dates: end: 20121120

REACTIONS (3)
  - Dyspnoea [Fatal]
  - Splenomegaly [Fatal]
  - Leukocytosis [Fatal]
